FAERS Safety Report 16920927 (Version 3)
Quarter: 2019Q4

REPORT INFORMATION
  Report Type: Spontaneous
  Country: ES (occurrence: ES)
  Receive Date: 20191015
  Receipt Date: 20191022
  Transmission Date: 20200122
  Serious: Yes (Hospitalization, Other)
  Sender: FDA-Public Use
  Company Number: ES-PFIZER INC-2019440674

PATIENT
  Age: 77 Year
  Sex: Female

DRUGS (7)
  1. LANSOPRAZOLE. [Concomitant]
     Active Substance: LANSOPRAZOLE
     Dosage: 1 DF, 1X/DAY (EVERY 24 HRS)
  2. SEPTRIN FORTE [Suspect]
     Active Substance: SULFAMETHOXAZOLE\TRIMETHOPRIM
     Dosage: UNK
  3. LORAZEPAM. [Concomitant]
     Active Substance: LORAZEPAM
     Dosage: 1 DF, 1X/DAY (EVERY 24 HRS)
  4. VINCRISTINE [Suspect]
     Active Substance: VINCRISTINE
     Indication: B-CELL LYMPHOMA
     Dosage: UNK, CYCLIC
  5. CYCLOPHOSPHAMIDE. [Suspect]
     Active Substance: CYCLOPHOSPHAMIDE
     Indication: B-CELL LYMPHOMA
     Dosage: UNK, CYCLIC
  6. ONDANSETRON [Concomitant]
     Active Substance: ONDANSETRON
     Dosage: 8 MG, 2X/DAY (EVERY 12 H)
  7. PREDNISONE. [Concomitant]
     Active Substance: PREDNISONE
     Indication: B-CELL LYMPHOMA
     Dosage: 30 MG, 1X/DAY (EVERY 24 HRS, CYCLIC)

REACTIONS (2)
  - Stevens-Johnson syndrome [Recovering/Resolving]
  - Toxic epidermal necrolysis [Recovering/Resolving]
